FAERS Safety Report 25368694 (Version 1)
Quarter: 2025Q2

REPORT INFORMATION
  Report Type: Spontaneous
  Country: NL (occurrence: MX)
  Receive Date: 20250528
  Receipt Date: 20250528
  Transmission Date: 20250717
  Serious: Yes (Hospitalization, Other)
  Sender: BAYER HEALTHCARE LLC
  Company Number: MX-MLMSERVICE-20250519-PI511621-00233-1

PATIENT
  Age: 51 Year
  Sex: Male

DRUGS (1)
  1. NAPROXEN SODIUM [Suspect]
     Active Substance: NAPROXEN SODIUM
     Indication: Myalgia
     Route: 048
     Dates: start: 202404

REACTIONS (3)
  - Cholestatic liver injury [Recovering/Resolving]
  - Self-medication [Unknown]
  - Drug-induced liver injury [None]

NARRATIVE: CASE EVENT DATE: 20240501
